FAERS Safety Report 15259081 (Version 1)
Quarter: 2018Q3

REPORT INFORMATION
  Report Type: Spontaneous
  Country: US (occurrence: US)
  Receive Date: 20180809
  Receipt Date: 20180809
  Transmission Date: 20181010
  Serious: Yes (Death, Life-Threatening, Hospitalization, Other)
  Sender: FDA-Public Use
  Company Number: US-ACCORD-070604

PATIENT
  Age: 77 Year
  Sex: Male

DRUGS (2)
  1. METHOTREXATE. [Suspect]
     Active Substance: METHOTREXATE
     Indication: SYNOVITIS
  2. METHOTREXATE. [Suspect]
     Active Substance: METHOTREXATE
     Indication: SYNOVITIS
     Dosage: ALSO RECEIVED ORALLY
     Route: 058

REACTIONS (4)
  - Off label use [Unknown]
  - Sepsis [Recovering/Resolving]
  - Pulmonary toxicity [Fatal]
  - Respiratory failure [Fatal]
